FAERS Safety Report 6382333-5 (Version None)
Quarter: 2009Q3

REPORT INFORMATION
  Report Type: 
  Country: None (occurrence: None)
  Receive Date: 20090930
  Receipt Date: 20090918
  Transmission Date: 20100115
  Serious: Yes (Other)
  Sender: FDA-Public Use
  Company Number: US-PFIZER INC-2005169960

PATIENT
  Age: 30 Year

DRUGS (6)
  1. ZYVOX [Suspect]
     Indication: OSTEOMYELITIS
     Route: 048
     Dates: start: 20051130, end: 20051201
  2. ACETAMINOPHEN [Concomitant]
     Route: 065
  3. VANCOMYCIN [Concomitant]
     Route: 042
     Dates: start: 20051102, end: 20051127
  4. MOXIFLOXACIN HCL [Concomitant]
     Route: 065
     Dates: start: 20051117, end: 20051129
  5. FAMOTIDINE [Concomitant]
     Route: 065
     Dates: start: 20051129
  6. DIPHENHYDRAMINE HCL [Concomitant]
     Route: 065
     Dates: start: 20051129

REACTIONS (9)
  - ARTHRALGIA [None]
  - AZOTAEMIA [None]
  - EOSINOPHILIA [None]
  - OLIGURIA [None]
  - PYREXIA [None]
  - RASH [None]
  - RASH MACULO-PAPULAR [None]
  - RENAL FAILURE [None]
  - TUBULOINTERSTITIAL NEPHRITIS [None]
